FAERS Safety Report 12509645 (Version 1)
Quarter: 2016Q2

REPORT INFORMATION
  Report Type: Spontaneous
  Country: IT (occurrence: IT)
  Receive Date: 20160629
  Receipt Date: 20160629
  Transmission Date: 20160815
  Serious: Yes (Other)
  Sender: FDA-Public Use
  Company Number: IT-JNJFOC-20160620451

PATIENT
  Age: 5 Year
  Sex: Female
  Weight: 14 kg

DRUGS (2)
  1. ENTUMIN [Suspect]
     Active Substance: CLOTHIAPINE
     Indication: PRODUCT USED FOR UNKNOWN INDICATION
     Route: 048
     Dates: start: 20160621, end: 20160621
  2. INVEGA [Suspect]
     Active Substance: PALIPERIDONE
     Indication: PRODUCT USED FOR UNKNOWN INDICATION
     Route: 048
     Dates: start: 20160621, end: 20160621

REACTIONS (3)
  - Sopor [Unknown]
  - Accidental exposure to product by child [Unknown]
  - Confusional state [Unknown]

NARRATIVE: CASE EVENT DATE: 20160621
